APPROVED DRUG PRODUCT: HEPARIN SODIUM 25,000 UNITS IN SODIUM CHLORIDE 0.45% IN PLASTIC CONTAINER
Active Ingredient: HEPARIN SODIUM
Strength: 5,000 UNITS/100ML
Dosage Form/Route: INJECTABLE;INJECTION
Application: N019953 | Product #003
Applicant: B BRAUN MEDICAL INC
Approved: Mar 25, 2025 | RLD: Yes | RS: Yes | Type: RX